FAERS Safety Report 4835756-7 (Version None)
Quarter: 2005Q4

REPORT INFORMATION
  Report Type: 
  Country: None (occurrence: None)
  Receive Date: 20051123
  Receipt Date: 20040816
  Transmission Date: 20060501
  Serious: Yes (Life-Threatening, Hospitalization, Other)
  Sender: FDA-Public Use
  Company Number: US-GLAXOSMITHKLINE-A0522773A

PATIENT
  Age: 32 Year
  Sex: Male
  Weight: 83.6 kg

DRUGS (4)
  1. PAXIL CR [Suspect]
     Indication: DEPRESSION
     Dosage: 25MG PER DAY
     Route: 048
     Dates: start: 20030331, end: 20030801
  2. LORTAB [Suspect]
     Route: 048
  3. BENADRYL [Suspect]
     Dosage: 75TAB SINGLE DOSE
     Route: 048
  4. NYQUIL [Suspect]
     Dosage: 1BT SINGLE DOSE
     Route: 048

REACTIONS (26)
  - ABASIA [None]
  - ANXIETY [None]
  - CARDIAC ARREST [None]
  - CARDIAC OUTPUT DECREASED [None]
  - DEPRESSION [None]
  - DRUG DEPENDENCE [None]
  - GRAND MAL CONVULSION [None]
  - HYPERCAPNIA [None]
  - HYPOTENSION [None]
  - HYPOXIA [None]
  - INTENTIONAL OVERDOSE [None]
  - LOSS OF CONSCIOUSNESS [None]
  - MAJOR DEPRESSION [None]
  - MEMORY IMPAIRMENT [None]
  - MOTOR DYSFUNCTION [None]
  - MYDRIASIS [None]
  - PANIC ATTACK [None]
  - PNEUMONIA [None]
  - RESPIRATORY ARREST [None]
  - SKIN LACERATION [None]
  - SUICIDAL IDEATION [None]
  - SUICIDE ATTEMPT [None]
  - SYNCOPE [None]
  - TACHYARRHYTHMIA [None]
  - VISION BLURRED [None]
  - VOMITING [None]
